FAERS Safety Report 5672178-3 (Version None)
Quarter: 2008Q1

REPORT INFORMATION
  Report Type: 
  Country: None (occurrence: None)
  Receive Date: 20080319
  Receipt Date: 20080313
  Transmission Date: 20080703
  Serious: Yes (Hospitalization)
  Sender: FDA-Public Use
  Company Number: BE-ROCHE-553437

PATIENT
  Age: 62 Year
  Sex: Female
  Weight: 58.5 kg

DRUGS (5)
  1. BONIVA [Suspect]
     Indication: OSTEOPOROSIS
     Route: 048
     Dates: start: 20070312
  2. LASIX [Concomitant]
     Indication: HYPERTENSION
  3. HALOPERIDOL [Concomitant]
     Indication: INSOMNIA
     Dosage: REPORTED AS OCCASIONALLY.
  4. CALCIUM [Concomitant]
     Indication: OSTEOPOROSIS
     Dosage: REPORTED AS SANDOZ CALCIUM FORTE. DOSAGE REGIMEN: DAILY.
     Route: 048
  5. CATAFLAM [Concomitant]
     Indication: BACK PAIN
     Dosage: REPORTED AS DAILY.

REACTIONS (1)
  - CHOLECYSTITIS ACUTE [None]
